FAERS Safety Report 7882188-3 (Version None)
Quarter: 2011Q4

REPORT INFORMATION
  Report Type: 
  Country: None (occurrence: None)
  Receive Date: 20111101
  Receipt Date: 20110610
  Transmission Date: 20120403
  Serious: No
  Sender: FDA-Public Use
  Company Number: US-AMGEN-USASP2011007053

PATIENT
  Age: 52 Year
  Sex: Female
  Weight: 72.562 kg

DRUGS (4)
  1. MULTIVITAMIN                       /00097801/ [Concomitant]
  2. PREDNISONE [Concomitant]
     Dosage: 5 MG, UNK
  3. ENBREL [Suspect]
     Indication: PRODUCT USED FOR UNKNOWN INDICATION
     Dosage: 25 MG, 2 TIMES/WK
  4. METHOTREXATE [Concomitant]
     Dosage: 2.5 MG, UNK

REACTIONS (2)
  - DIARRHOEA [None]
  - GASTROINTESTINAL DISORDER [None]
